FAERS Safety Report 13188604 (Version 1)
Quarter: 2017Q1

REPORT INFORMATION
  Report Type: Spontaneous
  Country: US (occurrence: US)
  Receive Date: 20170204
  Receipt Date: 20170204
  Transmission Date: 20170428
  Serious: Yes (Hospitalization, Other)
  Sender: FDA-Public Use
  Company Number: None

PATIENT
  Age: 32 Year
  Sex: Female

DRUGS (1)
  1. VIBERZI [Suspect]
     Active Substance: ELUXADOLINE
     Indication: IRRITABLE BOWEL SYNDROME
     Dosage: ?          QUANTITY:2 TABLET(S);?
     Route: 048
     Dates: end: 20170204

REACTIONS (7)
  - Vomiting [None]
  - Drug interaction [None]
  - Pancreatitis acute [None]
  - Nausea [None]
  - Movement disorder [None]
  - Abdominal pain upper [None]
  - Back pain [None]

NARRATIVE: CASE EVENT DATE: 20170203
